FAERS Safety Report 6698998-4 (Version None)
Quarter: 2010Q2

REPORT INFORMATION
  Report Type: 
  Country: None (occurrence: None)
  Receive Date: 20100427
  Receipt Date: 20100414
  Transmission Date: 20101027
  Serious: Yes (Hospitalization, Other)
  Sender: FDA-Public Use
  Company Number: JP-WATSON-2010-04247

PATIENT
  Age: 61 Year
  Sex: Female
  Weight: 58 kg

DRUGS (2)
  1. PREDNISOLONE [Suspect]
     Indication: HENOCH-SCHONLEIN PURPURA
     Dosage: 40 MG/DAY
  2. METHYLPREDNISOLONE ACETATE [Suspect]
     Indication: HENOCH-SCHONLEIN PURPURA
     Dosage: 500 MG/DAY

REACTIONS (3)
  - DEEP VEIN THROMBOSIS [None]
  - DIABETES MELLITUS [None]
  - PULMONARY EMBOLISM [None]
